FAERS Safety Report 9840320 (Version 1)
Quarter: 2013Q4

REPORT INFORMATION
  Report Type: Spontaneous
  Country: US (occurrence: None)
  Receive Date: 20131223
  Receipt Date: 20131223
  Transmission Date: 20140711
  Serious: No
  Sender: FDA-Public Use
  Company Number: 219835LEO

PATIENT
  Age: 66 Year
  Sex: Female

DRUGS (1)
  1. PICATO [Suspect]
     Indication: ACTINIC KERATOSIS
     Dosage: (1 IN 1 D), TOPICAL
     Route: 061
     Dates: start: 20121130, end: 20121202

REACTIONS (4)
  - Burning sensation [None]
  - Pruritus [None]
  - Paraesthesia [None]
  - Swelling [None]
